FAERS Safety Report 20904421 (Version 1)
Quarter: 2022Q2

REPORT INFORMATION
  Report Type: Spontaneous
  Country: CN (occurrence: None)
  Receive Date: 20220602
  Receipt Date: 20220602
  Transmission Date: 20220720
  Serious: Yes (Other)
  Sender: FDA-Public Use
  Company Number: CN-ROCHE-3102987

PATIENT
  Age: 55 Year
  Sex: Female
  Weight: 59 kg

DRUGS (6)
  1. HERCEPTIN [Suspect]
     Active Substance: TRASTUZUMAB
     Indication: Invasive breast carcinoma
     Dosage: FIRST DOSE
     Route: 065
  2. HERCEPTIN [Suspect]
     Active Substance: TRASTUZUMAB
     Dosage: FIRST DOSE
     Route: 065
  3. PERJETA [Suspect]
     Active Substance: PERTUZUMAB
     Indication: Invasive breast carcinoma
     Dosage: FIRST DOSE ?3 WEEKS AS A CYCLES.
     Route: 065
  4. PERJETA [Suspect]
     Active Substance: PERTUZUMAB
     Dosage: 3 WEEKS AS A CYCLES.
     Route: 065
  5. PACLITAXEL [Concomitant]
     Active Substance: PACLITAXEL
     Indication: Invasive breast carcinoma
     Dosage: DAY 1, 8
  6. LOBAPLATIN [Concomitant]
     Active Substance: LOBAPLATIN
     Indication: Invasive breast carcinoma
     Dosage: D1, 8

REACTIONS (1)
  - Myelosuppression [Unknown]
